FAERS Safety Report 5031886-8 (Version None)
Quarter: 2006Q2

REPORT INFORMATION
  Report Type: 
  Country: None (occurrence: None)
  Receive Date: 20060621
  Receipt Date: 20060620
  Transmission Date: 20061013
  Serious: Yes (Other)
  Sender: FDA-Public Use
  Company Number: US-BOEHRINGER INGELHEIM PHARMACEUTICALS, INC.-2006-BP-07012BP

PATIENT
  Sex: Female

DRUGS (3)
  1. CATAPRES [Suspect]
     Route: 065
  2. TIAZAC [Suspect]
     Route: 048
  3. AVAPRO [Suspect]
     Route: 065

REACTIONS (1)
  - RENAL DISORDER [None]
